FAERS Safety Report 20713723 (Version 1)
Quarter: 2022Q2

REPORT INFORMATION
  Report Type: Spontaneous
  Country: CL (occurrence: CL)
  Receive Date: 20220415
  Receipt Date: 20220415
  Transmission Date: 20220721
  Serious: Yes (Death)
  Sender: FDA-Public Use
  Company Number: CL-PERRIGO-22CL004941

PATIENT
  Age: 70 Year
  Sex: Male

DRUGS (2)
  1. CYCLOSPORINE [Suspect]
     Active Substance: CYCLOSPORINE
     Indication: Aplasia pure red cell
     Dosage: 100 MG, BID
     Route: 042
  2. PREDNISONE [Suspect]
     Active Substance: PREDNISONE
     Indication: Aplasia pure red cell
     Dosage: 30 MG, QD
     Route: 065

REACTIONS (3)
  - Respiratory tract infection [Fatal]
  - Pneumonia aspiration [Fatal]
  - Sepsis [Fatal]
